FAERS Safety Report 15860461 (Version 1)
Quarter: 2019Q1

REPORT INFORMATION
  Report Type: Spontaneous
  Country: SE (occurrence: SE)
  Receive Date: 20190123
  Receipt Date: 20190123
  Transmission Date: 20190417
  Serious: Yes (Life-Threatening, Hospitalization)
  Sender: FDA-Public Use
  Company Number: SE-MYLANLABS-2019M1006823

PATIENT
  Age: 62 Year
  Sex: Female
  Weight: 65 kg

DRUGS (1)
  1. LEPONEX [Suspect]
     Active Substance: CLOZAPINE
     Indication: PSYCHOTIC DISORDER
     Dosage: UNK
     Dates: start: 2017, end: 2017

REACTIONS (5)
  - Loss of consciousness [Recovered/Resolved with Sequelae]
  - Dyspnoea [Recovered/Resolved with Sequelae]
  - Hallucination [Recovered/Resolved with Sequelae]
  - Coma [Recovered/Resolved with Sequelae]
  - Brain injury [Recovered/Resolved with Sequelae]

NARRATIVE: CASE EVENT DATE: 2017
